FAERS Safety Report 8818472 (Version 1)
Quarter: 2012Q4

REPORT INFORMATION
  Report Type: 
  Country: US (occurrence: US)
  Receive Date: 20121001
  Receipt Date: 20121001
  Transmission Date: 20130627
  Serious: Yes (Hospitalization, Other)
  Sender: FDA-Public Use
  Company Number: US-ELI_LILLY_AND_COMPANY-US201209001229

PATIENT
  Age: 90 Year
  Sex: Female
  Weight: 41.7 kg

DRUGS (11)
  1. FORTEO [Suspect]
     Indication: OSTEOPOROSIS
     Dosage: 20 ug, qd
  2. FORTEO [Suspect]
     Dosage: 20 ug, qd
  3. FORTEO [Suspect]
     Dosage: 20 ug, qd
  4. NEXIUM [Concomitant]
     Dosage: 40 mg, UNK
  5. ASPIRIN [Concomitant]
     Dosage: 81 mg, UNK
  6. ZOLOFT [Concomitant]
     Dosage: 25 mg, UNK
  7. MULTIVITAMIN [Concomitant]
     Dosage: UNK
  8. CALCIUM [Concomitant]
     Dosage: 600 mg, UNK
  9. METAMUCIL [Concomitant]
     Dosage: 2.5 ml, qd
  10. XALATAN [Concomitant]
     Dosage: UNK
     Route: 047
  11. TIROSINT [Concomitant]
     Dosage: 13 mEq, UNK

REACTIONS (11)
  - Cerebrovascular accident [Unknown]
  - Pelvic fracture [Unknown]
  - Fall [Unknown]
  - Hypoacusis [Unknown]
  - Drug prescribing error [Not Recovered/Not Resolved]
  - Confusional state [Unknown]
  - Speech disorder [Unknown]
  - Dysarthria [Unknown]
  - Memory impairment [Unknown]
  - Bone density decreased [Unknown]
  - Anaemia [Recovered/Resolved]
